FAERS Safety Report 8554781-6 (Version None)
Quarter: 2012Q3

REPORT INFORMATION
  Report Type: 
  Country: None (occurrence: None)
  Receive Date: 20120731
  Receipt Date: 20120720
  Transmission Date: 20120928
  Serious: Yes (Other)
  Sender: FDA-Public Use
  Company Number: US-ACTELION-A-US2012-64449

PATIENT
  Age: 8 Year
  Sex: Male

DRUGS (4)
  1. TRACLEER [Suspect]
     Indication: PULMONARY ARTERIAL HYPERTENSION
     Dosage: UNK
     Route: 048
     Dates: start: 20110126
  2. ASPIRIN [Concomitant]
  3. LETAIRIS [Concomitant]
  4. REVATIO [Concomitant]

REACTIONS (3)
  - HEART TRANSPLANT [None]
  - PYREXIA [None]
  - DYSPNOEA [None]
